FAERS Safety Report 24041025 (Version 1)
Quarter: 2024Q3

REPORT INFORMATION
  Report Type: Spontaneous
  Country: BE (occurrence: BE)
  Receive Date: 20240702
  Receipt Date: 20240702
  Transmission Date: 20241017
  Serious: Yes (Other)
  Sender: UCB
  Company Number: BE-UCBSA-2024033060

PATIENT
  Age: 53 Year
  Sex: Male

DRUGS (1)
  1. BIMZELX [Suspect]
     Active Substance: BIMEKIZUMAB-BKZX
     Indication: Product used for unknown indication
     Dosage: UNK
     Dates: start: 202311, end: 2024

REACTIONS (1)
  - Colitis ulcerative [Unknown]

NARRATIVE: CASE EVENT DATE: 20240401
